FAERS Safety Report 9017275 (Version 1)
Quarter: 2013Q1

REPORT INFORMATION
  Report Type: Spontaneous
  Country: US (occurrence: US)
  Receive Date: 20130117
  Receipt Date: 20130117
  Transmission Date: 20140127
  Serious: No
  Sender: FDA-Public Use
  Company Number: US-PFIZER INC-2013015644

PATIENT
  Sex: Male

DRUGS (2)
  1. VIAGRA [Suspect]
     Indication: ERECTILE DYSFUNCTION
     Dosage: 100 MG, AS NEEDED
  2. AMLODIPINE BESILATE [Interacting]
     Dosage: 5 MG, UNK

REACTIONS (2)
  - Inhibitory drug interaction [Unknown]
  - Drug ineffective [Unknown]
